FAERS Safety Report 7717797-5 (Version None)
Quarter: 2011Q3

REPORT INFORMATION
  Report Type: 
  Country: None (occurrence: None)
  Receive Date: 20110824
  Receipt Date: 20110817
  Transmission Date: 20111222
  Serious: Yes (Hospitalization, Other)
  Sender: FDA-Public Use
  Company Number: CIP11000506

PATIENT
  Age: 75 Year
  Sex: Female
  Weight: 75.9 kg

DRUGS (10)
  1. FOSAMAX [Suspect]
     Indication: OSTEOPOROSIS
     Dosage: 70 MG, WEEKLY, ORAL ; 5 MG DAILY, ORAL ; 10 MG DAILY, ORAL
     Route: 048
     Dates: start: 20010316, end: 20040623
  2. HYZAAR /01284801/ (HYDROCHLOROTHIAZIDE, LOSARTAN POTASSIUM) [Concomitant]
  3. ALL OTHER THERAPEUTIC PRODUCTS [Concomitant]
  4. ASPIRIN [Concomitant]
  5. ACTONEL [Suspect]
     Dosage: 35 MG, ORAL
     Route: 048
     Dates: start: 20041029, end: 20050324
  6. AMLODIPINE BESYLATE [Concomitant]
  7. NEXIUM [Concomitant]
  8. ZOCOR (AMLODIPINE) [Concomitant]
  9. BONIVA [Suspect]
     Dosage: 150 MG, ORAL
     Route: 048
     Dates: start: 20051102, end: 20090622
  10. CALTRATE /0010801/ (CALCIUM CARBONATE) [Concomitant]

REACTIONS (7)
  - STRESS [None]
  - FEMUR FRACTURE [None]
  - GAIT DISTURBANCE [None]
  - ACTIVITIES OF DAILY LIVING IMPAIRED [None]
  - STRESS FRACTURE [None]
  - TENDERNESS [None]
  - ARTHRALGIA [None]
